FAERS Safety Report 6824938-0 (Version None)
Quarter: 2010Q3

REPORT INFORMATION
  Report Type: 
  Country: None (occurrence: None)
  Receive Date: 20100708
  Receipt Date: 20061224
  Transmission Date: 20110219
  Serious: No
  Sender: FDA-Public Use
  Company Number: US-PFIZER INC-2007001175

PATIENT
  Age: 42 Year
  Sex: Male
  Weight: 88.9 kg

DRUGS (2)
  1. CHANTIX [Suspect]
     Dates: start: 20061213
  2. BACTRIM [Suspect]
     Indication: STREPTOCOCCAL INFECTION
     Dates: start: 20061220

REACTIONS (2)
  - RASH [None]
  - STREPTOCOCCAL INFECTION [None]
